FAERS Safety Report 6373464-4 (Version None)
Quarter: 2009Q3

REPORT INFORMATION
  Report Type: 
  Country: None (occurrence: None)
  Receive Date: 20090924
  Receipt Date: 20090304
  Transmission Date: 20100115
  Serious: No
  Sender: FDA-Public Use
  Company Number: US-ASTRAZENECA-2009UW05850

PATIENT
  Age: 35 Year
  Sex: Female
  Weight: 84.8 kg

DRUGS (5)
  1. SEROQUEL [Suspect]
     Indication: BIPOLAR DISORDER
     Dosage: 100 MG IN AM AND 300 MG IN PM
     Route: 048
  2. WELLBUTRIN [Concomitant]
  3. LAMICTAL [Concomitant]
  4. REMERON [Concomitant]
  5. CLONOPIN [Concomitant]

REACTIONS (1)
  - HYPOAESTHESIA [None]
